FAERS Safety Report 8955496 (Version 1)
Quarter: 2012Q4

REPORT INFORMATION
  Report Type: Report from Study
  Country: US (occurrence: US)
  Receive Date: 20121207
  Receipt Date: 20121207
  Transmission Date: 20130627
  Serious: Yes (Hospitalization)
  Sender: FDA-Public Use
  Company Number: US-ROCHE-1165101

PATIENT
  Age: 48 Year
  Sex: Female
  Weight: 89.89 kg

DRUGS (16)
  1. REGLAN [Concomitant]
  2. LEXAPRO [Concomitant]
  3. HUMALOG [Concomitant]
  4. TRAMADOL [Concomitant]
  5. TYLENOL ARTHRITIS [Concomitant]
  6. ALPHAGAN [Concomitant]
  7. EYE DROPS (UNK INGREDIENTS) [Concomitant]
  8. XALATAN [Concomitant]
  9. OMALIZUMAB [Suspect]
     Indication: ASTHMA
     Route: 058
     Dates: start: 20050101
  10. HYDROCORTISONE [Concomitant]
  11. WELLBUTRIN [Concomitant]
  12. INSULIN [Concomitant]
  13. DHEA [Concomitant]
  14. VITAMIN D [Concomitant]
  15. TRICOR [Concomitant]
  16. PROTONIX [Concomitant]

REACTIONS (1)
  - Pneumonia [Unknown]
